FAERS Safety Report 4895893-8 (Version None)
Quarter: 2005Q4

REPORT INFORMATION
  Report Type: 
  Country: None (occurrence: None)
  Receive Date: 20051220
  Receipt Date: 20051001
  Transmission Date: 20060501
  Serious: Yes (Other)
  Sender: FDA-Public Use
  Company Number: 419901

PATIENT
  Sex: Female

DRUGS (5)
  1. BONIVA [Suspect]
     Indication: DRUG USE FOR UNKNOWN INDICATION
     Dosage: 150 MG 1 PER MONTH ORAL
     Route: 048
  2. FML-S LIQUIFILM (FLUOROMETHOLONE/SULFACETAMIDE) [Concomitant]
  3. PULMICORT [Concomitant]
  4. PROTONIX [Concomitant]
  5. OTHER DRUGS (NOT SPECIFIED) (GENERIC UNKNOWN) [Concomitant]

REACTIONS (1)
  - VULVOVAGINAL MYCOTIC INFECTION [None]
